FAERS Safety Report 5974847-4 (Version None)
Quarter: 2008Q4

REPORT INFORMATION
  Report Type: 
  Country: None (occurrence: None)
  Receive Date: 20081202
  Receipt Date: 20081127
  Transmission Date: 20090506
  Serious: Yes (Other)
  Sender: FDA-Public Use
  Company Number: FR-PFIZER INC-2008101061

PATIENT
  Age: 58 Year
  Sex: Male

DRUGS (2)
  1. TAHOR [Suspect]
     Indication: ACUTE CORONARY SYNDROME
     Dates: start: 20080301
  2. FUCIDINE CAP [Interacting]
     Indication: DIABETIC FOOT INFECTION

REACTIONS (5)
  - BLOOD CREATINE PHOSPHOKINASE INCREASED [None]
  - DRUG INTERACTION [None]
  - MUSCLE DISORDER [None]
  - POLYMYOSITIS [None]
  - SPEECH DISORDER [None]
